FAERS Safety Report 11569797 (Version 1)
Quarter: 2015Q3

REPORT INFORMATION
  Report Type: Spontaneous
  Country: US (occurrence: None)
  Receive Date: 20150928
  Receipt Date: 20150928
  Transmission Date: 20151125
  Serious: Yes (Hospitalization)
  Sender: FDA-Public Use
  Company Number: None

PATIENT
  Age: 37 Year
  Sex: Female
  Weight: 84 kg

DRUGS (10)
  1. CLONAZEPAM (KLONOPIN) 1 MG [Concomitant]
  2. GABAPENTIN (NEURONTIN) 800 MG [Concomitant]
  3. ESCITALOPRAM OXALATE (LEXAPRO) 20 MG [Concomitant]
  4. ATORVASTATIN CALCIUM (LIPITOR) 10 MG [Concomitant]
  5. SODIUM OXYBATE [Suspect]
     Active Substance: SODIUM OXYBATE
     Indication: NARCOLEPSY
     Dosage: QHS AND 4 H LATER
     Route: 048
  6. ATENOLOL 25 MG [Concomitant]
     Active Substance: ATENOLOL
  7. PROMETHAZINE HCL 50 MG [Concomitant]
  8. PANTOPRAZOLE SODIUM (PROTONIX) 40 MG [Concomitant]
  9. ARIPIPRAZOLE (ABILIFY MAINTENA) 400 MG [Concomitant]
  10. MODAFINIL (PROVIGIL) 200 MG [Concomitant]

REACTIONS (6)
  - Vomiting [None]
  - Lethargy [None]
  - Somnolence [None]
  - Speech disorder [None]
  - Mental status changes [None]
  - Nausea [None]

NARRATIVE: CASE EVENT DATE: 20150914
